FAERS Safety Report 5976756-3 (Version None)
Quarter: 2008Q4

REPORT INFORMATION
  Report Type: 
  Country: None (occurrence: None)
  Receive Date: 20081128
  Receipt Date: 20081114
  Transmission Date: 20090506
  Serious: Yes (Death)
  Sender: FDA-Public Use
  Company Number: 2007US003079

PATIENT
  Age: 58 Year
  Sex: Female

DRUGS (12)
  1. PROGRAF [Suspect]
     Indication: RENAL TRANSPLANT
     Dosage: 1.5 MG, UID/QD, ORAL
     Route: 048
     Dates: start: 20031018, end: 20070429
  2. RAPAMUNE [Concomitant]
  3. NEXIUM [Concomitant]
  4. AMARYL [Concomitant]
  5. CLONIDINE (CLONIDINE HYDROCHLORIDE) [Concomitant]
  6. SYNTHROID [Concomitant]
  7. TOPROL-XL [Concomitant]
  8. PLAVIX [Concomitant]
  9. BUMEX [Concomitant]
  10. ASPIRIN [Concomitant]
  11. PROCARDIA [Concomitant]
  12. ZOCOR [Concomitant]

REACTIONS (2)
  - BLOOD UREA INCREASED [None]
  - CARDIAC ARREST [None]
